FAERS Safety Report 19065018 (Version 3)
Quarter: 2021Q2

REPORT INFORMATION
  Report Type: Spontaneous
  Country: FR (occurrence: FR)
  Receive Date: 20210326
  Receipt Date: 20210511
  Transmission Date: 20210717
  Serious: Yes (Death, Hospitalization, Other)
  Sender: FDA-Public Use
  Company Number: FR-JAZZ-2021-FR-005509

PATIENT

DRUGS (11)
  1. LEVOTHYROX [Concomitant]
     Active Substance: LEVOTHYROXINE
  2. NEURONTIN [Concomitant]
     Active Substance: GABAPENTIN
  3. PARACETAMOL [Concomitant]
     Active Substance: ACETAMINOPHEN
  4. ACTISKENAN [Concomitant]
     Active Substance: MORPHINE SULFATE
  5. PROTIFAR [Concomitant]
     Active Substance: DIETARY SUPPLEMENT
  6. ZEPZELCA [Suspect]
     Active Substance: LURBINECTEDIN
     Indication: ANAPLASTIC THYROID CANCER
     Dosage: 3.2 MILLIGRAM/SQ. METER, CYCLICAL
     Route: 042
     Dates: start: 20201130, end: 20210222
  7. PRIMPERAN [Concomitant]
     Active Substance: METOCLOPRAMIDE HYDROCHLORIDE
  8. NUTRISON ENERGY MULTI FIBRE [Concomitant]
  9. FRESUBIN MEGAREAL [Concomitant]
  10. ESOMEPRAZOLE. [Concomitant]
     Active Substance: ESOMEPRAZOLE MAGNESIUM
  11. VERSATIS [Concomitant]
     Active Substance: LIDOCAINE

REACTIONS (6)
  - Localised oedema [Unknown]
  - Stoma site haemorrhage [Fatal]
  - Stoma site ulcer [Unknown]
  - Cough [Unknown]
  - Deep vein thrombosis [Unknown]
  - Pneumonia [Unknown]

NARRATIVE: CASE EVENT DATE: 20210315
